FAERS Safety Report 7762350-0 (Version None)
Quarter: 2011Q3

REPORT INFORMATION
  Report Type: 
  Country: None (occurrence: None)
  Receive Date: 20110920
  Receipt Date: 20110912
  Transmission Date: 20111222
  Serious: Yes (Hospitalization)
  Sender: FDA-Public Use
  Company Number: DE-ROCHE-802097

PATIENT
  Sex: Male
  Weight: 103 kg

DRUGS (3)
  1. RIBAVIRIN [Suspect]
     Route: 048
     Dates: start: 20110502
  2. PEGINTERFERON ALFA-2A [Suspect]
     Route: 065
     Dates: start: 20110502
  3. TELAPREVIR [Suspect]
     Route: 048
     Dates: start: 20110502, end: 20110724

REACTIONS (1)
  - SUBSTANCE USE [None]
